FAERS Safety Report 21206275 (Version 2)
Quarter: 2022Q3

REPORT INFORMATION
  Report Type: Report from Study
  Country: JO (occurrence: None)
  Receive Date: 20220812
  Receipt Date: 20220818
  Transmission Date: 20221027
  Serious: Yes (Hospitalization)
  Sender: FDA-Public Use
  Company Number: JO-Merck Healthcare KGaA-9342223

PATIENT
  Age: 29 Year
  Sex: Male

DRUGS (1)
  1. REBIF [Suspect]
     Active Substance: INTERFERON BETA-1A
     Indication: Multiple sclerosis
     Route: 058
     Dates: start: 20210809

REACTIONS (1)
  - Immune thrombocytopenia [Unknown]

NARRATIVE: CASE EVENT DATE: 20220603
